FAERS Safety Report 5528540-2 (Version None)
Quarter: 2007Q4

REPORT INFORMATION
  Report Type: 
  Country: None (occurrence: None)
  Receive Date: 20071121
  Receipt Date: 20071105
  Transmission Date: 20080405
  Serious: Yes (Hospitalization)
  Sender: FDA-Public Use
  Company Number: 8027996

PATIENT
  Sex: Male

DRUGS (3)
  1. KEPPRA [Suspect]
     Dosage: 500 MG 2/D
     Dates: start: 20070101, end: 20070101
  2. KEPPRA [Suspect]
     Dosage: 750 MG 2/D
     Dates: start: 20070101
  3. EPANUTIN /00017402/ [Concomitant]

REACTIONS (11)
  - AMNESIA [None]
  - CONFUSIONAL STATE [None]
  - COORDINATION ABNORMAL [None]
  - DEPRESSION [None]
  - DIPLOPIA [None]
  - DIZZINESS [None]
  - FALL [None]
  - FATIGUE [None]
  - IRRITABILITY [None]
  - RASH [None]
  - VERTIGO [None]
